FAERS Safety Report 23486147 (Version 1)
Quarter: 2024Q1

REPORT INFORMATION
  Report Type: Spontaneous
  Country: ES (occurrence: ES)
  Receive Date: 20240206
  Receipt Date: 20240206
  Transmission Date: 20240410
  Serious: Yes (Other)
  Sender: FDA-Public Use
  Company Number: None

PATIENT
  Age: 60 Year
  Sex: Female
  Weight: 70 kg

DRUGS (3)
  1. BEMPEDOIC ACID [Suspect]
     Active Substance: BEMPEDOIC ACID
     Indication: Hypercholesterolaemia
     Dosage: 180 MG, QD
     Route: 048
     Dates: start: 20231101
  2. FLUOXETINE [Concomitant]
     Active Substance: FLUOXETINE HYDROCHLORIDE
     Indication: Persistent depressive disorder
     Dosage: 20 MG, QD (1 DAILY AT BREAKFAST)
     Route: 048
     Dates: start: 20031001
  3. ALLERGOVIT DEPOT [Concomitant]
     Indication: Allergy to animal
     Dosage: UNK (MONTHLY VACCINE 1 ML)
     Route: 065
     Dates: start: 20170915

REACTIONS (2)
  - Arthralgia [Recovering/Resolving]
  - Gouty tophus [Recovering/Resolving]

NARRATIVE: CASE EVENT DATE: 20240101
